FAERS Safety Report 8385541-7 (Version None)
Quarter: 2012Q2

REPORT INFORMATION
  Report Type: 
  Country: None (occurrence: None)
  Receive Date: 20120525
  Receipt Date: 20120515
  Transmission Date: 20120825
  Serious: Yes (Hospitalization)
  Sender: FDA-Public Use
  Company Number: DE-AMGEN-DEUSP2012031516

PATIENT
  Age: 67 Year
  Sex: Female

DRUGS (5)
  1. ENBREL [Suspect]
     Indication: PSORIATIC ARTHROPATHY
     Dosage: 50 MG, WEEKLY
     Dates: start: 20040101
  2. ENBREL [Suspect]
     Dosage: 50 MG, 2X/WEEK
  3. CALCIUM D3 STADA [Concomitant]
     Dosage: UNK
  4. ALLOBETA [Concomitant]
     Dosage: 150 MG, UNK
  5. IRBESARTAN [Concomitant]
     Dosage: 300 MG, UNK

REACTIONS (1)
  - PANCREATITIS CHRONIC [None]
